FAERS Safety Report 21460323 (Version 2)
Quarter: 2022Q4

REPORT INFORMATION
  Report Type: Spontaneous
  Country: MX (occurrence: None)
  Receive Date: 20221014
  Receipt Date: 20221019
  Transmission Date: 20230112
  Serious: Yes (Other)
  Sender: FDA-Public Use
  Company Number: MX-Eisai Medical Research-EC-2022-123096

PATIENT
  Age: 71 Year
  Sex: Male

DRUGS (1)
  1. LENVIMA [Suspect]
     Active Substance: LENVATINIB
     Indication: Hepatocellular carcinoma
     Dosage: FREQUENCY UNKNOWN
     Route: 048
     Dates: start: 202010

REACTIONS (4)
  - Forced expiratory volume decreased [Unknown]
  - Ascites [Unknown]
  - Myocardial ischaemia [Unknown]
  - Dyspnoea exertional [Unknown]

NARRATIVE: CASE EVENT DATE: 20210419
